FAERS Safety Report 7544890-2 (Version None)
Quarter: 2011Q2

REPORT INFORMATION
  Report Type: 
  Country: None (occurrence: None)
  Receive Date: 20110614
  Receipt Date: 20110531
  Transmission Date: 20111010
  Serious: Yes (Hospitalization, Other)
  Sender: FDA-Public Use
  Company Number: US-BAYER-200938978NA

PATIENT
  Age: 40 Year
  Sex: Female
  Weight: 86 kg

DRUGS (3)
  1. YAZ [Suspect]
     Dosage: UNK UNK, QD
     Route: 048
     Dates: start: 20080701, end: 20090315
  2. YAZ [Suspect]
     Dosage: PHARMACY RECORDS: PRESCRIPTIONS FILLED FROM 18-MAR-2008 TO 16-FEB-2009
     Route: 048
     Dates: start: 20080225
  3. YASMIN [Suspect]
     Route: 048

REACTIONS (4)
  - INTRACARDIAC THROMBUS [None]
  - DEEP VEIN THROMBOSIS [None]
  - GAIT DISTURBANCE [None]
  - PAIN IN EXTREMITY [None]
